FAERS Safety Report 8327994-6 (Version None)
Quarter: 2012Q2

REPORT INFORMATION
  Report Type: 
  Country: None (occurrence: None)
  Receive Date: 20120502
  Receipt Date: 20120425
  Transmission Date: 20120825
  Serious: Yes (Other)
  Sender: FDA-Public Use
  Company Number: US-PURDUE-USA-2012-0085221

PATIENT
  Sex: Female

DRUGS (2)
  1. OXYCONTIN [Suspect]
     Dosage: 40 MG, SEE TEXT
     Route: 048
     Dates: start: 20120101
  2. OXYCONTIN [Suspect]
     Indication: SURGERY
     Dosage: 10 MG, SEE TEXT
     Route: 048
     Dates: start: 20120101

REACTIONS (4)
  - UTERINE HAEMORRHAGE [None]
  - MATERNAL EXPOSURE DURING PREGNANCY [None]
  - UTERINE SPASM [None]
  - ABORTION SPONTANEOUS [None]
